FAERS Safety Report 24243081 (Version 2)
Quarter: 2024Q3

REPORT INFORMATION
  Report Type: Spontaneous
  Country: CN (occurrence: CN)
  Receive Date: 20240823
  Receipt Date: 20240827
  Transmission Date: 20241016
  Serious: Yes (Hospitalization, Other)
  Sender: MERCK
  Company Number: CN-009507513-2408CHN006717

PATIENT
  Age: 36 Year
  Sex: Female
  Weight: 57 kg

DRUGS (3)
  1. KEYTRUDA [Suspect]
     Active Substance: PEMBROLIZUMAB
     Indication: Malignant melanoma
     Dosage: UNK
  2. KEYTRUDA [Suspect]
     Active Substance: PEMBROLIZUMAB
     Dosage: 200 MG, DAY 1 OF Q3W
     Route: 041
     Dates: start: 20231101, end: 20240125
  3. AXITINIB [Concomitant]
     Active Substance: AXITINIB
     Indication: Malignant melanoma
     Dosage: 5 MG, BID
     Route: 048
     Dates: start: 20231101, end: 20240125

REACTIONS (8)
  - Myocardial injury [Unknown]
  - Electrocardiogram T wave inversion [Unknown]
  - Hospitalisation [Unknown]
  - Hypothyroidism [Unknown]
  - Palpitations [Not Recovered/Not Resolved]
  - Chest discomfort [Not Recovered/Not Resolved]
  - Blood creatine phosphokinase increased [Not Recovered/Not Resolved]
  - Paraesthesia [Unknown]

NARRATIVE: CASE EVENT DATE: 20240101
